FAERS Safety Report 6058639-6 (Version None)
Quarter: 2009Q1

REPORT INFORMATION
  Report Type: 
  Country: None (occurrence: None)
  Receive Date: 20090130
  Receipt Date: 20090119
  Transmission Date: 20090719
  Serious: Yes (Life-Threatening)
  Sender: FDA-Public Use
  Company Number: JP-PFIZER INC-2009151830

PATIENT

DRUGS (12)
  1. SULPERAZON [Suspect]
     Indication: INFECTION PROPHYLAXIS
     Dosage: 1 G, UNK
     Route: 042
     Dates: start: 20081104, end: 20081104
  2. IOPAMIDOL [Suspect]
     Dosage: UNK
     Route: 042
     Dates: start: 20081104, end: 20081104
  3. CISPLATIN [Suspect]
     Dosage: UNK
     Route: 042
     Dates: start: 20081104
  4. LIPIODOL ULTRA-FLUID [Suspect]
     Dosage: UNK
     Route: 042
     Dates: start: 20081104, end: 20081104
  5. XYLOCAINE [Concomitant]
     Dosage: UNK
     Dates: start: 20081101
  6. HEPARIN SODIUM [Concomitant]
     Dosage: UNK
     Dates: start: 20081104
  7. PALUX [Concomitant]
     Dosage: UNK
     Dates: start: 20081104
  8. KYTRIL - FOR INFUSION [Concomitant]
     Dosage: UNK
     Dates: start: 20081104
  9. SODIUM CHLORIDE [Concomitant]
     Dosage: UNK
     Dates: start: 20081104
  10. PENTAZOCINE LACTATE [Concomitant]
     Dosage: UNK
  11. ATARAX [Concomitant]
     Dosage: UNK
     Dates: start: 20081104
  12. ACTIT [Suspect]
     Dosage: UNK

REACTIONS (3)
  - BLOOD PRESSURE DECREASED [None]
  - NAUSEA [None]
  - RESPIRATORY ARREST [None]
